FAERS Safety Report 13586726 (Version 1)
Quarter: 2017Q2

REPORT INFORMATION
  Report Type: Spontaneous
  Country: US (occurrence: US)
  Receive Date: 20170526
  Receipt Date: 20170526
  Transmission Date: 20170830
  Serious: Yes (Other)
  Sender: FDA-Public Use
  Company Number: US-AMGEN-USASP2017078993

PATIENT
  Age: 58 Year
  Sex: Female

DRUGS (3)
  1. ETANERCEPT [Suspect]
     Active Substance: ETANERCEPT
     Indication: POLYARTHRITIS
  2. ETANERCEPT [Suspect]
     Active Substance: ETANERCEPT
     Indication: RHEUMATIC DISORDER
     Dosage: 25 MG, 2 TIMES/WK
     Route: 065
     Dates: start: 2005
  3. ETANERCEPT [Suspect]
     Active Substance: ETANERCEPT
     Indication: SERONEGATIVE ARTHRITIS

REACTIONS (5)
  - Iron deficiency anaemia [Unknown]
  - Whipple^s disease [Recovering/Resolving]
  - Therapeutic response unexpected [Unknown]
  - Jugular vein distension [Unknown]
  - Off label use [Unknown]

NARRATIVE: CASE EVENT DATE: 2005
